FAERS Safety Report 6437991-3 (Version None)
Quarter: 2009Q4

REPORT INFORMATION
  Report Type: 
  Country: None (occurrence: None)
  Receive Date: 20091112
  Receipt Date: 20091103
  Transmission Date: 20100525
  Serious: Yes (Life-Threatening, Hospitalization)
  Sender: FDA-Public Use
  Company Number: GXKR2009CN12085

PATIENT
  Age: 65 Year
  Sex: Female

DRUGS (2)
  1. ACETYLSALICYLIC ACID SRT [Suspect]
     Dosage: 75 MG/DAY
     Route: 048
  2. ANESTHETICS [Concomitant]
     Indication: GENERAL ANAESTHESIA
     Route: 065

REACTIONS (2)
  - COMA [None]
  - HAEMORRHAGE INTRACRANIAL [None]
